FAERS Safety Report 10084245 (Version 2)
Quarter: 2014Q2

REPORT INFORMATION
  Report Type: Spontaneous
  Country: CA (occurrence: CA)
  Receive Date: 20140417
  Receipt Date: 20140520
  Transmission Date: 20141212
  Serious: Yes (Other)
  Sender: FDA-Public Use
  Company Number: CA-SA-2014SA048744

PATIENT
  Age: 37 Year
  Sex: Female

DRUGS (1)
  1. TUBERSOL [Suspect]
     Indication: TUBERCULIN TEST
     Dosage: SOLUTION INTRADERMAL
     Route: 023
     Dates: start: 20130702, end: 20130702

REACTIONS (5)
  - Vaccination site cellulitis [Recovered/Resolved]
  - Vaccination site reaction [Recovered/Resolved]
  - Activities of daily living impaired [Recovered/Resolved]
  - Erythema [Recovered/Resolved]
  - Induration [Recovered/Resolved]
